FAERS Safety Report 6648554-9 (Version None)
Quarter: 2010Q1

REPORT INFORMATION
  Report Type: 
  Country: None (occurrence: None)
  Receive Date: 20100309
  Receipt Date: 20100129
  Transmission Date: 20100710
  Serious: No
  Sender: FDA-Public Use
  Company Number: 2010SP006937

PATIENT
  Sex: Female

DRUGS (2)
  1. SAPHRIS [Suspect]
     Indication: DRUG USE FOR UNKNOWN INDICATION
     Dosage: 5 MG; BID, 10 MG; BID
     Dates: start: 20100101
  2. SAPHRIS [Suspect]
     Indication: DRUG USE FOR UNKNOWN INDICATION
     Dosage: 5 MG; BID, 10 MG; BID
     Dates: start: 20100101

REACTIONS (2)
  - DYSGEUSIA [None]
  - GALACTORRHOEA [None]
